FAERS Safety Report 5722065-7 (Version None)
Quarter: 2008Q2

REPORT INFORMATION
  Report Type: 
  Country: None (occurrence: None)
  Receive Date: 20080429
  Receipt Date: 20080417
  Transmission Date: 20081010
  Serious: Yes (Hospitalization)
  Sender: FDA-Public Use
  Company Number: FR-PFIZER INC-2008034996

PATIENT
  Age: 86 Year
  Sex: Female

DRUGS (12)
  1. LYRICA [Suspect]
     Indication: FACIAL NEURALGIA
     Route: 048
     Dates: start: 20070904, end: 20070908
  2. TEGRETOL [Suspect]
     Indication: FACIAL NEURALGIA
     Dosage: DAILY DOSE:1000MG
     Route: 048
  3. DILTIAZEM HCL [Concomitant]
     Route: 048
  4. PLAVIX [Concomitant]
  5. BETASERC [Concomitant]
  6. ADANCOR [Concomitant]
  7. ULTRACET [Concomitant]
  8. ALDACTAZIDE [Concomitant]
  9. NULYTELY [Concomitant]
  10. LANZOR [Concomitant]
  11. GABAPENTIN [Concomitant]
  12. RIVOTRIL [Concomitant]

REACTIONS (3)
  - FALL [None]
  - SOMNOLENCE [None]
  - VOMITING [None]
